FAERS Safety Report 8875025 (Version 1)
Quarter: 2012Q4

REPORT INFORMATION
  Report Type: 
  Country: US (occurrence: US)
  Receive Date: 20121029
  Receipt Date: 20121029
  Transmission Date: 20130627
  Serious: No
  Sender: FDA-Public Use
  Company Number: US-PFIZER INC-2012267945

PATIENT
  Age: 74 Year
  Sex: Male

DRUGS (1)
  1. INLYTA [Suspect]
     Indication: CARCINOMA KIDNEY
     Dosage: 5 mg, 2x/day
     Dates: start: 20120529

REACTIONS (2)
  - Disease progression [Unknown]
  - Renal cancer [Unknown]
